FAERS Safety Report 8825380 (Version 1)
Quarter: 2012Q4

REPORT INFORMATION
  Report Type: 
  Country: US (occurrence: US)
  Receive Date: 20121004
  Receipt Date: 20121004
  Transmission Date: 20130627
  Serious: No
  Sender: FDA-Public Use
  Company Number: US-VERTEX PHARMACEUTICAL INC.-2012-020551

PATIENT
  Age: 60 Year
  Sex: Male
  Weight: 104 kg

DRUGS (7)
  1. VX-950 [Suspect]
     Indication: HEPATITIS C
     Dosage: 750 mg, tid
     Route: 048
  2. PEGASYS [Concomitant]
     Indication: HEPATITIS C
     Dosage: 180 UNK, UNK
     Route: 058
  3. CENTRUM SILVER                     /01292501/ [Concomitant]
     Route: 048
  4. DIOVAN [Concomitant]
     Dosage: 160 mg, UNK
     Route: 048
  5. PRAVASTATIN [Concomitant]
     Dosage: 20 mg, UNK
     Route: 048
  6. GLYBURIDE [Concomitant]
     Dosage: 2.5 mg, UNK
     Route: 048
  7. ASPIRIN [Suspect]
     Dosage: 81 mg, UNK

REACTIONS (9)
  - Dizziness [Unknown]
  - Influenza like illness [Unknown]
  - Headache [Unknown]
  - Pollakiuria [Unknown]
  - Insomnia [Unknown]
  - Decreased appetite [Unknown]
  - Haemorrhoids [Unknown]
  - Rectal haemorrhage [Unknown]
  - Dysgeusia [Unknown]
